FAERS Safety Report 4570766-9 (Version None)
Quarter: 2005Q1

REPORT INFORMATION
  Report Type: 
  Country: None (occurrence: None)
  Receive Date: 20050202
  Receipt Date: 20050119
  Transmission Date: 20050727
  Serious: Yes (Death, Hospitalization)
  Sender: FDA-Public Use
  Company Number: US_0501110645

PATIENT
  Age: 30 Year
  Sex: Female
  Weight: 23 kg

DRUGS (1)
  1. FORTEO [Suspect]
     Indication: OSTEOPOROSIS
     Dosage: 20 UG/1 DAY
     Dates: start: 20040928, end: 20041224

REACTIONS (6)
  - CHOLURIA [None]
  - DYSPNOEA [None]
  - HEPATIC STEATOSIS [None]
  - SEPSIS [None]
  - SWELLING [None]
  - URINARY TRACT INFECTION [None]
